FAERS Safety Report 23944496 (Version 5)
Quarter: 2025Q1

REPORT INFORMATION
  Report Type: Report from Study
  Country: AU (occurrence: AU)
  Receive Date: 20240606
  Receipt Date: 20250228
  Transmission Date: 20250408
  Serious: Yes (Other)
  Sender: TAKEDA
  Company Number: AU-TAKEDA-2024TUS055925

PATIENT
  Age: 63 Year
  Sex: Female

DRUGS (4)
  1. VEDOLIZUMAB [Suspect]
     Active Substance: VEDOLIZUMAB
     Indication: Crohn^s disease
  2. VEDOLIZUMAB [Suspect]
     Active Substance: VEDOLIZUMAB
  3. VEDOLIZUMAB [Suspect]
     Active Substance: VEDOLIZUMAB
  4. VEDOLIZUMAB [Suspect]
     Active Substance: VEDOLIZUMAB

REACTIONS (12)
  - Haematochezia [Not Recovered/Not Resolved]
  - Toothache [Not Recovered/Not Resolved]
  - Diarrhoea [Recovered/Resolved]
  - Tooth infection [Recovering/Resolving]
  - Blood iron decreased [Not Recovered/Not Resolved]
  - Abdominal pain [Recovered/Resolved]
  - Haemorrhoids [Not Recovered/Not Resolved]
  - Herpes zoster [Recovered/Resolved]
  - Sinusitis [Not Recovered/Not Resolved]
  - Nausea [Recovered/Resolved]
  - Pyrexia [Recovered/Resolved]
  - Inappropriate schedule of product administration [Recovered/Resolved]

NARRATIVE: CASE EVENT DATE: 20240910
